FAERS Safety Report 13991545 (Version 2)
Quarter: 2017Q4

REPORT INFORMATION
  Report Type: Other
  Country: RU (occurrence: RU)
  Receive Date: 20170920
  Receipt Date: 20171013
  Transmission Date: 20180321
  Serious: Yes (Other)
  Sender: FDA-Public Use
  Company Number: RU-EMD SERONO-8181987

PATIENT
  Age: 8 Year
  Sex: Female

DRUGS (3)
  1. CORTEF [Suspect]
     Active Substance: HYDROCORTISONE
     Indication: HORMONE REPLACEMENT THERAPY
  2. L-THYROXINE [Suspect]
     Active Substance: LEVOTHYROXINE
     Indication: HORMONE REPLACEMENT THERAPY
  3. SOMATROPIN. [Suspect]
     Active Substance: SOMATROPIN
     Indication: HORMONE REPLACEMENT THERAPY

REACTIONS (2)
  - Loss of consciousness [Recovered/Resolved]
  - Vomiting [Recovered/Resolved]
